FAERS Safety Report 4814441-1 (Version None)
Quarter: 2005Q4

REPORT INFORMATION
  Report Type: 
  Country: None (occurrence: None)
  Receive Date: 20051028
  Receipt Date: 20050826
  Transmission Date: 20060501
  Serious: No
  Sender: FDA-Public Use
  Company Number: US-GLAXOSMITHKLINE-A0571976A

PATIENT
  Age: 89 Year
  Sex: Female

DRUGS (4)
  1. ADVAIR DISKUS 100/50 [Suspect]
     Indication: DRUG USE FOR UNKNOWN INDICATION
     Dosage: 1PUFF TWICE PER DAY
     Route: 055
     Dates: start: 20050312
  2. SPIRIVA [Concomitant]
  3. DEMADEX [Concomitant]
  4. ALDACTONE [Concomitant]

REACTIONS (1)
  - DYSPHONIA [None]
